FAERS Safety Report 25448133 (Version 1)
Quarter: 2025Q2

REPORT INFORMATION
  Report Type: Spontaneous
  Country: US (occurrence: US)
  Receive Date: 20250617
  Receipt Date: 20250617
  Transmission Date: 20250716
  Serious: No
  Sender: GILEAD
  Company Number: US-GILEAD-2025-0716915

PATIENT
  Sex: Female

DRUGS (2)
  1. LIVDELZI [Suspect]
     Active Substance: SELADELPAR LYSINE
     Indication: Primary biliary cholangitis
     Route: 065
     Dates: start: 20250211
  2. URSO [Concomitant]
     Active Substance: URSODIOL

REACTIONS (1)
  - Drug ineffective [Not Recovered/Not Resolved]

NARRATIVE: CASE EVENT DATE: 20250211
